FAERS Safety Report 4571185-1 (Version None)
Quarter: 2005Q1

REPORT INFORMATION
  Report Type: 
  Country: None (occurrence: None)
  Receive Date: 20050202
  Receipt Date: 20050114
  Transmission Date: 20050727
  Serious: Yes (Hospitalization)
  Sender: FDA-Public Use
  Company Number: JP_050105639

PATIENT
  Sex: Female

DRUGS (2)
  1. GEMZAR [Suspect]
     Indication: PANCREATIC CARCINOMA
     Route: 042
  2. RADIOTHERAPY [Concomitant]

REACTIONS (1)
  - GASTRIC ULCER [None]
